FAERS Safety Report 16630745 (Version 1)
Quarter: 2019Q3

REPORT INFORMATION
  Report Type: Spontaneous
  Country: US (occurrence: US)
  Receive Date: 20190725
  Receipt Date: 20190725
  Transmission Date: 20191004
  Serious: No
  Sender: FDA-Public Use
  Company Number: US-BAYER-2019-133648

PATIENT
  Sex: Female

DRUGS (4)
  1. ALKA-SELTZER ORIGINAL [Concomitant]
     Active Substance: ANHYDROUS CITRIC ACID\ASPIRIN\SODIUM BICARBONATE
     Indication: ABDOMINAL DISTENSION
  2. SUDAFED [XYLOMETAZOLINE HYDROCHLORIDE] [Suspect]
     Active Substance: XYLOMETAZOLINE HYDROCHLORIDE
  3. CLARITIN [Suspect]
     Active Substance: LORATADINE
     Route: 048
  4. ALKA-SELTZER ORIGINAL [Concomitant]
     Active Substance: ANHYDROUS CITRIC ACID\ASPIRIN\SODIUM BICARBONATE
     Indication: FLATULENCE

REACTIONS (4)
  - Asthenia [Unknown]
  - Feeling abnormal [Unknown]
  - Hypersensitivity [None]
  - Drug ineffective [None]
